FAERS Safety Report 7796891-7 (Version None)
Quarter: 2011Q4

REPORT INFORMATION
  Report Type: 
  Country: None (occurrence: None)
  Receive Date: 20111005
  Receipt Date: 20110923
  Transmission Date: 20120403
  Serious: Yes (Other)
  Sender: FDA-Public Use
  Company Number: GB-RANBAXY-2011R1-48627

PATIENT
  Age: 20 Year
  Sex: Male

DRUGS (2)
  1. QUINIDINE HCL [Concomitant]
     Indication: PRODUCT USED FOR UNKNOWN INDICATION
     Dosage: UNK
     Route: 065
  2. FLUOXETINE [Suspect]
     Indication: MYASTHENIC SYNDROME
     Dosage: 60 MG, QD
     Route: 065

REACTIONS (2)
  - RESPIRATORY DISORDER [None]
  - OFF LABEL USE [None]
